FAERS Safety Report 6877785-8 (Version None)
Quarter: 2010Q3

REPORT INFORMATION
  Report Type: 
  Country: None (occurrence: None)
  Receive Date: 20100727
  Receipt Date: 20091106
  Transmission Date: 20110219
  Serious: No
  Sender: FDA-Public Use
  Company Number: US-ABBOTT-09P-163-0607777-00

PATIENT
  Sex: Female
  Weight: 79.45 kg

DRUGS (5)
  1. SYNTHROID [Suspect]
     Indication: THYROIDECTOMY
     Dates: start: 20050901
  2. SYNTHROID [Suspect]
     Dates: end: 20080601
  3. LEVOTHYROXINE SODIUM [Suspect]
     Indication: PRODUCT USED FOR UNKNOWN INDICATION
     Dosage: UNKNOWN
  4. KLONAPIN [Concomitant]
     Indication: ANXIETY
     Dates: start: 20080101
  5. KLONAPIN [Concomitant]
     Dosage: WEANING DOWN

REACTIONS (3)
  - ANXIETY [None]
  - CRYING [None]
  - PANIC ATTACK [None]
